FAERS Safety Report 24707997 (Version 4)
Quarter: 2025Q3

REPORT INFORMATION
  Report Type: Report from Study
  Country: US (occurrence: US)
  Receive Date: 20241206
  Receipt Date: 20250803
  Transmission Date: 20251021
  Serious: Yes (Hospitalization, Other)
  Sender: ALEXION PHARMACEUTICALS
  Company Number: US-AstraZeneca-CH-00756298A

PATIENT
  Age: 18 Year
  Sex: Female
  Weight: 74.83 kg

DRUGS (3)
  1. STRENSIQ [Suspect]
     Active Substance: ASFOTASE ALFA
     Indication: Hypophosphatasia
     Dosage: UNK , TIW
  2. STRENSIQ [Suspect]
     Active Substance: ASFOTASE ALFA
  3. STRENSIQ [Suspect]
     Active Substance: ASFOTASE ALFA
     Dosage: 1 MILLIGRAM/KILOGRAM, SIX TIMES/WEEK
     Dates: end: 202411

REACTIONS (17)
  - Anaphylactic reaction [Recovered/Resolved]
  - Headache [Recovered/Resolved]
  - Throat tightness [Recovered/Resolved]
  - Facial discomfort [Recovered/Resolved]
  - Hypertension [Recovered/Resolved]
  - Paraesthesia [Recovered/Resolved]
  - Skin tightness [Recovered/Resolved]
  - Pharyngeal swelling [Recovered/Resolved]
  - Tremor [Unknown]
  - Fatigue [Unknown]
  - Arthralgia [Unknown]
  - Dyspnoea [Unknown]
  - Paranasal sinus discomfort [Unknown]
  - Pain [Recovered/Resolved]
  - Anxiety [Recovered/Resolved]
  - Tachycardia [Recovered/Resolved]
  - General physical health deterioration [Unknown]
